FAERS Safety Report 7959112-8 (Version None)
Quarter: 2011Q4

REPORT INFORMATION
  Report Type: 
  Country: None (occurrence: None)
  Receive Date: 20111206
  Receipt Date: 20111206
  Transmission Date: 20120403
  Serious: Yes (Other)
  Sender: FDA-Public Use
  Company Number: None

PATIENT
  Age: 47 Year
  Sex: Male
  Weight: 95.254 kg

DRUGS (1)
  1. LEVOFLOXACIN [Suspect]
     Indication: DIVERTICULITIS
     Dosage: 11 PILS OF 500MG
     Route: 048
     Dates: start: 20111027, end: 20111110

REACTIONS (3)
  - PAIN IN EXTREMITY [None]
  - TENDON PAIN [None]
  - ROTATOR CUFF SYNDROME [None]
